FAERS Safety Report 8365780-1 (Version None)
Quarter: 2012Q2

REPORT INFORMATION
  Report Type: 
  Country: None (occurrence: None)
  Receive Date: 20120517
  Receipt Date: 20120509
  Transmission Date: 20120825
  Serious: Yes (Other)
  Sender: FDA-Public Use
  Company Number: US-AMGEN-USASP2012029693

PATIENT
  Age: 49 Year
  Sex: Male

DRUGS (1)
  1. ENBREL [Suspect]
     Indication: PSORIATIC ARTHROPATHY
     Dosage: 50 MG, QWK
     Dates: start: 20110101

REACTIONS (7)
  - NAIL DISORDER [None]
  - BLOOD GLUCOSE INCREASED [None]
  - SUICIDAL IDEATION [None]
  - PSORIATIC ARTHROPATHY [None]
  - WEIGHT DECREASED [None]
  - PURULENT DISCHARGE [None]
  - BLOOD POTASSIUM DECREASED [None]
